FAERS Safety Report 6476949-5 (Version None)
Quarter: 2009Q4

REPORT INFORMATION
  Report Type: 
  Country: None (occurrence: None)
  Receive Date: 20091202
  Receipt Date: 20091116
  Transmission Date: 20100525
  Serious: Yes (Other)
  Sender: FDA-Public Use
  Company Number: 438772

PATIENT
  Sex: Male

DRUGS (2)
  1. VINORELBINE [Suspect]
     Dates: start: 20081204
  2. VINORELBINE [Suspect]
     Dates: start: 20081204

REACTIONS (2)
  - PHLEBITIS [None]
  - VASCULITIS [None]
